FAERS Safety Report 13571010 (Version 3)
Quarter: 2017Q4

REPORT INFORMATION
  Report Type: Spontaneous
  Country: FR (occurrence: FR)
  Receive Date: 20170523
  Receipt Date: 20171204
  Transmission Date: 20180320
  Serious: Yes (Hospitalization)
  Sender: FDA-Public Use
  Company Number: FR-UCBSA-2017019814

PATIENT
  Age: 31 Year
  Sex: Female
  Weight: 62 kg

DRUGS (3)
  1. SPECIAFOLDINE [Concomitant]
     Active Substance: FOLIC ACID
     Indication: PRODUCT USED FOR UNKNOWN INDICATION
     Dosage: 5MG TWICE IN THE MORNING AT NOON AND IN THE EVENING EVERY MONDAY
  2. CERTOLIZUMAB PEGOL [Suspect]
     Active Substance: CERTOLIZUMAB PEGOL
     Indication: PSORIATIC ARTHROPATHY
     Dosage: ONE INJECTION, EV 4 WEEKS
     Dates: start: 2013, end: 20141027
  3. METHOTREXATE. [Concomitant]
     Active Substance: METHOTREXATE
     Indication: PSORIATIC ARTHROPATHY
     Dosage: 10MG TWICE IN THE MORNING EVERY SATURDAY
     Dates: start: 2013, end: 2014

REACTIONS (1)
  - Tularaemia [Recovered/Resolved]

NARRATIVE: CASE EVENT DATE: 201411
